FAERS Safety Report 14302486 (Version 5)
Quarter: 2018Q3

REPORT INFORMATION
  Report Type: Spontaneous
  Country: FR (occurrence: FR)
  Receive Date: 20171219
  Receipt Date: 20180822
  Transmission Date: 20181010
  Serious: Yes (Disabling, Other)
  Sender: FDA-Public Use
  Company Number: FR-AUROBINDO-AUR-APL-2017-45849

PATIENT
  Age: 32 Year
  Sex: Male

DRUGS (51)
  1. CITALOPRAM FILM?COATED TABLET [Suspect]
     Active Substance: CITALOPRAM HYDROBROMIDE
     Indication: PRODUCT USED FOR UNKNOWN INDICATION
     Dosage: UNK
     Route: 048
     Dates: start: 20110318
  2. RIVOTRIL [Suspect]
     Active Substance: CLONAZEPAM
     Dosage: ()
     Route: 065
     Dates: start: 20110510
  3. CLONAZEPAM. [Suspect]
     Active Substance: CLONAZEPAM
     Indication: NECK PAIN
     Dosage: UNK UNK,QD (1)
     Route: 065
     Dates: start: 20110328
  4. SOLUPRED                           /00016201/ [Concomitant]
     Active Substance: PREDNISOLONE
     Indication: PRODUCT USED FOR UNKNOWN INDICATION
     Dosage: UNK
     Route: 048
     Dates: start: 20110726
  5. TANGANIL [Concomitant]
     Active Substance: ACETYLLEUCINE
     Indication: PRODUCT USED FOR UNKNOWN INDICATION
     Dosage: 3 DF,QD
     Route: 048
     Dates: start: 20110303
  6. NEBIVOLOL. [Suspect]
     Active Substance: NEBIVOLOL
     Dosage: 2 DF, QD
     Route: 048
     Dates: start: 20101115, end: 20110509
  7. RIVOTRIL [Suspect]
     Active Substance: CLONAZEPAM
     Indication: NECK PAIN
     Dosage: ()
     Route: 065
     Dates: start: 20110718, end: 201110
  8. MIOREL                             /00764801/ [Concomitant]
     Indication: PRODUCT USED FOR UNKNOWN INDICATION
     Dosage: 1 DOSAGE FORM, 8 HOUR
     Route: 048
     Dates: start: 20101213
  9. DOLIPRANE [Concomitant]
     Active Substance: ACETAMINOPHEN
     Indication: PRODUCT USED FOR UNKNOWN INDICATION
     Dosage: 1 DF,TID
     Route: 048
     Dates: start: 20101213
  10. NEBIVOLOL. [Suspect]
     Active Substance: NEBIVOLOL
     Indication: PRODUCT USED FOR UNKNOWN INDICATION
     Dosage: 2 DF, QD
     Route: 048
     Dates: start: 20110510, end: 201207
  11. RIVOTRIL [Suspect]
     Active Substance: CLONAZEPAM
     Dosage: 15 DF,QD
     Route: 065
     Dates: start: 20110303, end: 20110327
  12. TETRAZEPAM [Suspect]
     Active Substance: TETRAZEPAM
     Dosage: UNK UNK,UNK ()
     Route: 048
     Dates: start: 20110705
  13. TEMERIT [Suspect]
     Active Substance: NEBIVOLOL
     Dosage: 2 DF,QD
     Route: 048
     Dates: start: 20110510, end: 201207
  14. TEMERIT [Suspect]
     Active Substance: NEBIVOLOL
     Dosage: QD ()
     Route: 048
     Dates: start: 2011, end: 20110509
  15. ATARAX [Suspect]
     Active Substance: HYDROXYZINE HYDROCHLORIDE
     Indication: PRODUCT USED FOR UNKNOWN INDICATION
     Dosage: UNK
     Route: 048
     Dates: start: 20120131, end: 201207
  16. LAROXYL [Suspect]
     Active Substance: AMITRIPTYLINE HYDROCHLORIDE
     Indication: NECK PAIN
     Dosage: 5?8 DROPS ()
     Route: 065
     Dates: start: 20110219
  17. NUREFLEX [Concomitant]
     Active Substance: IBUPROFEN
     Indication: PRODUCT USED FOR UNKNOWN INDICATION
     Dosage: UNK UNK,UNK ()
     Route: 048
     Dates: start: 20101213
  18. PRAXINOR                           /00276601/ [Concomitant]
     Active Substance: CAFEDRINE\THEODRENALINE
     Indication: PRODUCT USED FOR UNKNOWN INDICATION
     Dosage: 2 DOSAGE FORM, ONCE A DAY
     Route: 048
     Dates: start: 20101127
  19. DOLIPRANE [Concomitant]
     Active Substance: ACETAMINOPHEN
     Dosage: 1 DF,TID
     Route: 048
     Dates: start: 20110201
  20. HYDROXYZINE [Suspect]
     Active Substance: HYDROXYZINE HYDROCHLORIDE
     Indication: PRODUCT USED FOR UNKNOWN INDICATION
     Dosage: UNK UNK,UNK ()
     Route: 048
     Dates: start: 20120131, end: 201207
  21. TETRAZEPAM [Suspect]
     Active Substance: TETRAZEPAM
     Indication: PRODUCT USED FOR UNKNOWN INDICATION
     Dosage: UNK UNK,UNK ()
     Route: 048
     Dates: start: 20110228
  22. CLONAZEPAM. [Suspect]
     Active Substance: CLONAZEPAM
     Dosage: UNK UNK,QD (1)
     Route: 065
     Dates: start: 20110219, end: 20110302
  23. MIOREL                             /00764801/ [Concomitant]
     Dosage: 1 DOSAGE FORM, 8 HOUR
     Route: 048
     Dates: start: 20100606
  24. VALIUM [Concomitant]
     Active Substance: DIAZEPAM
     Indication: PRODUCT USED FOR UNKNOWN INDICATION
     Dosage: 1 DF,1X; IN TOTAL
     Route: 051
     Dates: start: 20101115, end: 20101115
  25. COVATINE [Concomitant]
     Active Substance: CAPTODIAME HYDROCHLORIDE
     Indication: PRODUCT USED FOR UNKNOWN INDICATION
     Dosage: UNK UNK,UNK ()
     Route: 048
     Dates: start: 20120620, end: 201207
  26. DEXTROPROPOXYPHENE NAPSILATE W/PARACETAMOL [Suspect]
     Active Substance: ACETAMINOPHEN\PROPOXYPHENE NAPSYLATE
     Indication: PAIN
     Dosage: 2 DOSAGE FORM, 6 HOUR
     Route: 048
     Dates: start: 20100606
  27. CLONAZEPAM. [Suspect]
     Active Substance: CLONAZEPAM
     Dosage: 15 DF,QD
     Route: 065
     Dates: start: 20110303, end: 20110327
  28. CLONAZEPAM. [Suspect]
     Active Substance: CLONAZEPAM
     Dosage: UNK
     Dates: start: 20110718
  29. CLONAZEPAM. [Suspect]
     Active Substance: CLONAZEPAM
     Dosage: UNK UNK,UNK ()
     Route: 065
     Dates: start: 20110718, end: 201110
  30. UVEDOSE [Concomitant]
     Active Substance: CHOLECALCIFEROL
     Indication: PRODUCT USED FOR UNKNOWN INDICATION
     Dosage: 1 DF,QOW
     Route: 065
     Dates: start: 20110219
  31. MIOREL                             /00764801/ [Concomitant]
     Dosage: 1 DOSAGE FORM, 8 HOUR
     Route: 048
     Dates: start: 20110201
  32. THEODRENALINE HYDROCHLORIDE [Concomitant]
     Active Substance: THEODRENALINE HYDROCHLORIDE
     Indication: PRODUCT USED FOR UNKNOWN INDICATION
     Dosage: 2 DF,QD
     Route: 048
     Dates: start: 20101127
  33. PAROXETINE. [Suspect]
     Active Substance: PAROXETINE
     Indication: PRODUCT USED FOR UNKNOWN INDICATION
     Dosage: UNK UNK,UNK ()
     Route: 048
     Dates: start: 20110201
  34. MILNACIPRAN [Suspect]
     Active Substance: MILNACIPRAN
     Indication: PANIC ATTACK
     Dosage: 2 DF, QD
     Route: 048
     Dates: start: 20110322
  35. TETRAZEPAM [Suspect]
     Active Substance: TETRAZEPAM
     Dosage: UNK UNK,UNK ()
     Route: 048
     Dates: start: 20110726
  36. TEMERIT [Suspect]
     Active Substance: NEBIVOLOL
     Indication: CARDIAC DISORDER
     Dosage: 2 DF,QD
     Route: 048
     Dates: start: 20110718, end: 201207
  37. CLONAZEPAM. [Suspect]
     Active Substance: CLONAZEPAM
     Dosage: UNK UNK,UNK ()
     Route: 065
     Dates: start: 20110510
  38. MIOREL                             /00764801/ [Concomitant]
     Dosage: 1 DOSAGE FORM, 8 HOUR
     Route: 048
     Dates: start: 20101210
  39. MIOREL                             /00764801/ [Concomitant]
     Dosage: 3 DOSAGE FORM, ONCE A DAY
     Route: 048
     Dates: start: 20101213
  40. STRESAM [Concomitant]
     Active Substance: ETIFOXINE
     Indication: PRODUCT USED FOR UNKNOWN INDICATION
     Dosage: UNK UNK,UNK ()
     Route: 048
     Dates: start: 20120327
  41. NEBIVOLOL. [Suspect]
     Active Substance: NEBIVOLOL
     Dosage: 2 DF, QD
     Route: 048
     Dates: start: 20110718, end: 201207
  42. RIVOTRIL [Suspect]
     Active Substance: CLONAZEPAM
     Dosage: 5?8 DROPS ()
     Route: 065
     Dates: start: 20110219, end: 20110302
  43. RIVOTRIL [Suspect]
     Active Substance: CLONAZEPAM
     Dosage: 5?8 DROPS ()
     Route: 065
     Dates: start: 20110328
  44. AMITRIPTYLINE HYDROCHLORIDE. [Suspect]
     Active Substance: AMITRIPTYLINE HYDROCHLORIDE
     Indication: NECK PAIN
     Dosage: UNK UNK,QD (1)
     Route: 065
     Dates: start: 20110219
  45. AMITRIPTYLINE HYDROCHLORIDE. [Suspect]
     Active Substance: AMITRIPTYLINE HYDROCHLORIDE
     Indication: NECK PAIN
  46. DIAZEPAM. [Concomitant]
     Active Substance: DIAZEPAM
     Indication: PRODUCT USED FOR UNKNOWN INDICATION
     Dosage: 1 DOSAGE FORM, IN TOTAL
     Route: 065
     Dates: start: 20101115, end: 20101115
  47. DOLIPRANE [Concomitant]
     Active Substance: ACETAMINOPHEN
     Dosage: 1 DF,TID
     Route: 048
     Dates: start: 20110328
  48. COLECALCIFEROL [Concomitant]
     Active Substance: CHOLECALCIFEROL
     Indication: PRODUCT USED FOR UNKNOWN INDICATION
     Dosage: 1000000 IU
     Route: 065
     Dates: start: 20110219
  49. TEMERIT [Suspect]
     Active Substance: NEBIVOLOL
     Dosage: 2 DOSAGE FORM, ONCE A DAY
     Route: 048
     Dates: start: 20101115, end: 20110509
  50. IXEL [Suspect]
     Active Substance: MILNACIPRAN HYDROCHLORIDE
     Indication: PANIC ATTACK
     Dosage: 2 DF,QD
     Route: 048
     Dates: start: 20110322
  51. MIOREL                             /00764801/ [Concomitant]
     Dosage: 3 DF, QD
     Route: 048
     Dates: start: 20101210

REACTIONS (25)
  - Suicidal ideation [Recovered/Resolved]
  - Memory impairment [Recovered/Resolved]
  - Anxiety [Recovered/Resolved]
  - Tachycardia [Recovered/Resolved]
  - Asthenia [Unknown]
  - Limb discomfort [Unknown]
  - Musculoskeletal pain [Unknown]
  - Tinnitus [Recovered/Resolved]
  - Panic attack [Recovered/Resolved]
  - Erectile dysfunction [Recovering/Resolving]
  - Drug intolerance [Recovering/Resolving]
  - Hypoacusis [Recovered/Resolved]
  - Intervertebral disc disorder [Unknown]
  - Post-traumatic stress disorder [Recovered/Resolved]
  - Neurosis [Recovered/Resolved]
  - Hypertonia [Unknown]
  - Dyspnoea [Unknown]
  - Adverse event [Unknown]
  - Pain in extremity [Unknown]
  - Hallucination, auditory [Recovered/Resolved]
  - Personal relationship issue [Recovered/Resolved]
  - Visual impairment [Recovered/Resolved]
  - Agoraphobia [Recovered/Resolved]
  - Psychotic disorder [Recovered/Resolved]
  - Malaise [Recovered/Resolved]

NARRATIVE: CASE EVENT DATE: 2010
